FAERS Safety Report 18633765 (Version 1)
Quarter: 2020Q4

REPORT INFORMATION
  Report Type: Spontaneous
  Country: US (occurrence: US)
  Receive Date: 20201217
  Receipt Date: 20201217
  Transmission Date: 20210114
  Serious: Yes (Hospitalization)
  Sender: FDA-Public Use
  Company Number: None

PATIENT
  Age: 85 Year
  Sex: Female
  Weight: 65 kg

DRUGS (24)
  1. DEXAMETHASONE. [Concomitant]
     Active Substance: DEXAMETHASONE
  2. ASPIRIN 81 [Concomitant]
     Active Substance: ASPIRIN
  3. DIVALPROEX 125 MG DELAYED RELEASE SPRINKLES [Concomitant]
  4. MOBIC [Concomitant]
     Active Substance: MELOXICAM
  5. SINGULAIR [Concomitant]
     Active Substance: MONTELUKAST SODIUM
  6. ZINC SULFATE. [Concomitant]
     Active Substance: ZINC SULFATE
  7. BAMLANIVIMAB. [Suspect]
     Active Substance: BAMLANIVIMAB
     Indication: COVID-19
     Route: 042
     Dates: start: 20201210, end: 20201210
  8. NORMAL SALINE [Concomitant]
     Active Substance: SODIUM CHLORIDE
  9. DEPAKOTE 25 DELAYED RELEASE [Concomitant]
  10. FLUTICASONE PROPIONATE SUSPENSION [Concomitant]
  11. MACROBID [Concomitant]
     Active Substance: NITROFURANTOIN\NITROFURANTOIN MONOHYDRATE
  12. MEGESTROL ACETATE. [Concomitant]
     Active Substance: MEGESTROL ACETATE
  13. MIRALAX [Concomitant]
     Active Substance: POLYETHYLENE GLYCOL 3350
  14. NAMENDA XR [Concomitant]
     Active Substance: MEMANTINE HYDROCHLORIDE
  15. OCUVITE [Concomitant]
     Active Substance: VITAMINS
  16. PYRIDIUM [Concomitant]
     Active Substance: PHENAZOPYRIDINE
  17. CYANOCOBALAMIN SOLUTION [Concomitant]
  18. FOLIC ACID. [Concomitant]
     Active Substance: FOLIC ACID
  19. LACTOBACILLUS ACIDOPHILUS\LACTOBACILLUS BULGARICUS [Concomitant]
     Active Substance: LACTOBACILLUS ACIDOPHILUS\LACTOBACILLUS DELBRUECKII SUBSP. BULGARICUS
  20. ZOLOFT [Concomitant]
     Active Substance: SERTRALINE HYDROCHLORIDE
  21. VITAMIN B COMPLEX [Concomitant]
     Active Substance: CYANOCOBALAMIN\DEXPANTHENOL\NIACINAMIDE\PYRIDOXINE HYDROCHLORIDE\RIBOFLAVIN 5^-PHOSPHATE SODIUM\THIAMINE HYDROCHLORIDE\VITAMIN B COMPLEX
  22. DOCCUSATE SODIUM [Concomitant]
  23. VITAMIN C [Concomitant]
     Active Substance: ASCORBIC ACID
  24. MUCINEX EXTENDED RELEASE [Concomitant]

REACTIONS (12)
  - Dyspnoea [None]
  - Urine analysis abnormal [None]
  - Aggression [None]
  - Mental status changes [None]
  - Blood lactic acid increased [None]
  - Oxygen saturation decreased [None]
  - Electrolyte imbalance [None]
  - Dysarthria [None]
  - Pallor [None]
  - Malaise [None]
  - Confusional state [None]
  - Hypoxia [None]

NARRATIVE: CASE EVENT DATE: 20201210
